FAERS Safety Report 13639869 (Version 1)
Quarter: 2017Q2

REPORT INFORMATION
  Report Type: Spontaneous
  Country: US (occurrence: US)
  Receive Date: 20170609
  Receipt Date: 20170609
  Transmission Date: 20170830
  Serious: No
  Sender: FDA-Public Use
  Company Number: US-ROCHE-651080

PATIENT
  Age: 30 Year
  Sex: Female

DRUGS (1)
  1. KLONOPIN [Suspect]
     Active Substance: CLONAZEPAM
     Indication: PANIC ATTACK
     Dosage: FORM: WAFER, DOSE: 2-0.25 MG AT NIGHT AND AS NEEDED
     Route: 048

REACTIONS (8)
  - Visual impairment [Unknown]
  - Constipation [Unknown]
  - Insomnia [Unknown]
  - Vision blurred [Unknown]
  - Nausea [Unknown]
  - Diarrhoea [Unknown]
  - Tremor [Unknown]
  - Night sweats [Unknown]

NARRATIVE: CASE EVENT DATE: 200810
